FAERS Safety Report 7955104-3 (Version None)
Quarter: 2011Q4

REPORT INFORMATION
  Report Type: 
  Country: None (occurrence: None)
  Receive Date: 20111202
  Receipt Date: 20111118
  Transmission Date: 20120403
  Serious: Yes (Disabling, Other)
  Sender: FDA-Public Use
  Company Number: JP-CELGENEUS-087-21880-11112820

PATIENT
  Sex: Male

DRUGS (39)
  1. REVLIMID [Suspect]
     Dosage: 15 MILLIGRAM
     Route: 048
     Dates: start: 20110617, end: 20110707
  2. REVLIMID [Suspect]
     Dosage: 15 MILLIGRAM
     Route: 048
     Dates: start: 20110715, end: 20110804
  3. LENADEX [Suspect]
     Indication: MULTIPLE MYELOMA
     Dosage: 24 MILLIGRAM
     Route: 048
     Dates: start: 20110519, end: 20110522
  4. LENADEX [Suspect]
     Dosage: 24 MILLIGRAM
     Route: 048
     Dates: start: 20110703, end: 20110706
  5. LENADEX [Suspect]
     Dosage: 24 MILLIGRAM
     Route: 048
     Dates: start: 20110812, end: 20110815
  6. BACTRIM [Concomitant]
     Indication: PROPHYLAXIS
     Dosage: 1 TABLET
     Route: 048
     Dates: start: 20090801, end: 20110615
  7. SOLITA-T NO.1 [Concomitant]
     Indication: ILL-DEFINED DISORDER
     Dosage: 1000 MILLILITER
     Route: 041
     Dates: start: 20110512, end: 20110519
  8. LENADEX [Suspect]
     Dosage: 24 MILLIGRAM
     Route: 048
     Dates: start: 20110731, end: 20110803
  9. ITRACONAZOLE [Concomitant]
     Indication: PROPHYLAXIS
     Dosage: 50 MILLIGRAM
     Route: 048
     Dates: start: 20090801, end: 20110615
  10. BACTRIM [Concomitant]
     Dosage: 1 TABLET
     Route: 048
     Dates: start: 20110617, end: 20110818
  11. MAGMITT [Concomitant]
     Dosage: 1980 MILLIGRAM
     Route: 048
     Dates: start: 20110617, end: 20110818
  12. EPOGIN [Concomitant]
     Indication: ILL-DEFINED DISORDER
     Dosage: 12000 IU (INTERNATIONAL UNIT)
     Route: 058
     Dates: start: 20110714, end: 20110714
  13. LENADEX [Suspect]
     Dosage: 24 MILLIGRAM
     Route: 048
     Dates: start: 20110527, end: 20110530
  14. NEUFAN [Concomitant]
     Indication: ILL-DEFINED DISORDER
     Route: 048
     Dates: start: 20090801, end: 20110615
  15. MOHRUS TAPE [Concomitant]
     Dosage: 20 MILLIGRAM
     Route: 062
     Dates: start: 20110617, end: 20110818
  16. GLYCERIN [Concomitant]
     Indication: ILL-DEFINED DISORDER
     Dosage: 60 MILLILITER
     Route: 054
     Dates: start: 20110804, end: 20110808
  17. LACTEC [Concomitant]
     Dosage: 1000 MILLILITER
     Route: 041
     Dates: start: 20110805, end: 20110817
  18. REVLIMID [Suspect]
     Indication: MULTIPLE MYELOMA
     Dosage: 15 MILLIGRAM
     Route: 048
     Dates: start: 20110519, end: 20110608
  19. LENADEX [Suspect]
     Dosage: 24 MILLIGRAM
     Route: 048
     Dates: start: 20110604, end: 20110607
  20. SOLITA-T NO.1 [Concomitant]
     Dosage: 1500 MILLILITER
     Route: 041
     Dates: start: 20110630, end: 20110704
  21. LENADEX [Suspect]
     Dosage: 24 MILLIGRAM
     Route: 048
     Dates: start: 20110617, end: 20110620
  22. LANSOPRAZOLE [Concomitant]
     Indication: PROPHYLAXIS
     Dosage: 15 MILLIGRAM
     Route: 048
     Dates: start: 20090801, end: 20110615
  23. ITRACONAZOLE [Concomitant]
     Dosage: 50 MILLIGRAM
     Route: 048
     Dates: start: 20110617, end: 20110818
  24. MAGMITT [Concomitant]
     Indication: ILL-DEFINED DISORDER
     Dosage: 1980 MILLIGRAM
     Route: 048
     Dates: start: 20090801, end: 20110615
  25. FENTOS TAPE [Concomitant]
     Indication: ILL-DEFINED DISORDER
     Dosage: 1 MILLIGRAM
     Route: 062
     Dates: start: 20110812, end: 20110821
  26. LACTEC [Concomitant]
     Indication: ILL-DEFINED DISORDER
     Dosage: 500 MILLILITER
     Route: 041
     Dates: start: 20110710, end: 20110710
  27. SOLITA-T3 [Concomitant]
     Indication: ILL-DEFINED DISORDER
     Dosage: 1500 MILLILITER
     Route: 041
     Dates: start: 20110728, end: 20110804
  28. LENADEX [Suspect]
     Dosage: 24 MILLIGRAM
     Route: 048
     Dates: start: 20110723, end: 20110726
  29. LANSOPRAZOLE [Concomitant]
     Dosage: 15 MILLIGRAM
     Route: 048
     Dates: start: 20110617, end: 20110818
  30. SOLITA-T NO.1 [Concomitant]
     Dosage: 1500 MILLILITER
     Route: 041
     Dates: start: 20110710, end: 20110719
  31. PURSENNID [Concomitant]
     Indication: ILL-DEFINED DISORDER
     Dosage: 24 MILLIGRAM
     Route: 048
     Dates: start: 20110617, end: 20110818
  32. PYRINAZIN [Concomitant]
     Indication: ILL-DEFINED DISORDER
     Dosage: .5 GRAM
     Route: 048
     Dates: start: 20110811, end: 20110818
  33. LENADEX [Suspect]
     Dosage: 24 MILLIGRAM
     Route: 048
     Dates: start: 20110715, end: 20110718
  34. NEUFAN [Concomitant]
     Route: 048
     Dates: start: 20110617, end: 20110818
  35. REVLIMID [Suspect]
     Dosage: 15 MILLIGRAM
     Route: 048
     Dates: start: 20110812, end: 20110817
  36. LENADEX [Suspect]
     Dosage: 24 MILLIGRAM
     Route: 048
     Dates: start: 20110625, end: 20110628
  37. MOHRUS TAPE [Concomitant]
     Indication: ILL-DEFINED DISORDER
     Dosage: 20 MILLIGRAM
     Route: 062
     Dates: start: 20090801, end: 20110615
  38. SODIUM BICARBONATE [Concomitant]
     Indication: PROPHYLAXIS
     Dosage: 40 MILLILITER
     Route: 041
     Dates: start: 20110512, end: 20110519
  39. LAXOBERON [Concomitant]
     Indication: ILL-DEFINED DISORDER
     Dosage: 15 DROPS
     Route: 048
     Dates: start: 20110716, end: 20110818

REACTIONS (9)
  - DIABETES MELLITUS [None]
  - THROMBOCYTOPENIA [None]
  - DIARRHOEA [None]
  - RESTLESSNESS [None]
  - WEIGHT DECREASED [None]
  - ATRIAL FIBRILLATION [None]
  - HEPATIC FUNCTION ABNORMAL [None]
  - HYPOXIA [None]
  - MELAENA [None]
